FAERS Safety Report 7497454-3 (Version None)
Quarter: 2011Q2

REPORT INFORMATION
  Report Type: 
  Country: None (occurrence: None)
  Receive Date: 20110523
  Receipt Date: 20110513
  Transmission Date: 20111010
  Serious: Yes (Disabling, Other)
  Sender: FDA-Public Use
  Company Number: US-PURDUE-USA-2011-0068265

PATIENT
  Sex: Male

DRUGS (1)
  1. OXYCONTIN [Suspect]
     Indication: SCIATICA
     Dosage: UNK UNK, SEE TEXT

REACTIONS (5)
  - HIP FRACTURE [None]
  - LIGAMENT RUPTURE [None]
  - ROAD TRAFFIC ACCIDENT [None]
  - INTERVERTEBRAL DISC INJURY [None]
  - JOINT DISLOCATION [None]
